FAERS Safety Report 5713224-8 (Version None)
Quarter: 2008Q2

REPORT INFORMATION
  Report Type: 
  Country: None (occurrence: None)
  Receive Date: 20080422
  Receipt Date: 19971010
  Transmission Date: 20081010
  Serious: Yes (Death, Hospitalization)
  Sender: FDA-Public Use
  Company Number: US-ROCHE-88340

PATIENT
  Sex: Female

DRUGS (17)
  1. GANCICLOVIR [Suspect]
     Route: 048
     Dates: start: 19970918, end: 19970923
  2. GANCICLOVIR SODIUM [Suspect]
     Route: 042
     Dates: start: 19970904, end: 19970917
  3. DOPAMINE HCL [Concomitant]
  4. LEVOPHED [Concomitant]
  5. DIPRIVAN [Concomitant]
  6. CYTOTEC [Concomitant]
  7. CARAFATE [Concomitant]
  8. PREDNISONE [Concomitant]
  9. LASIX [Concomitant]
  10. NEUPOGEN [Concomitant]
  11. MAGNESIUM SULFATE [Concomitant]
  12. FOSCARNET [Concomitant]
  13. INSULIN [Concomitant]
  14. IMIPENEM [Concomitant]
  15. AMPHOTERICINE [Concomitant]
  16. BACTRIM [Concomitant]
  17. BACTRIM [Concomitant]

REACTIONS (4)
  - APLASTIC ANAEMIA [None]
  - BLOOD PRESSURE DECREASED [None]
  - DEATH [None]
  - RESPIRATORY DISTRESS [None]
